FAERS Safety Report 7597688-3 (Version None)
Quarter: 2011Q3

REPORT INFORMATION
  Report Type: 
  Country: None (occurrence: None)
  Receive Date: 20110708
  Receipt Date: 20110614
  Transmission Date: 20111222
  Serious: Yes (Hospitalization)
  Sender: FDA-Public Use
  Company Number: US-GLAXOSMITHKLINE-A0866829A

PATIENT
  Age: 61 Year
  Sex: Female

DRUGS (10)
  1. HYDROCODONE BITARTRATE [Concomitant]
  2. MIRTAZAPINE [Concomitant]
  3. AVANDIA [Suspect]
     Indication: TYPE 2 DIABETES MELLITUS
     Dosage: 4MG TWICE PER DAY
     Route: 065
     Dates: start: 20020101, end: 20080212
  4. RANITIDINE [Concomitant]
  5. CARBAMAZEPINE [Concomitant]
  6. NAPROXEN [Concomitant]
     Dosage: 375MG PER DAY
  7. QUININE SULFATE [Concomitant]
  8. METHOCARBAMOL [Concomitant]
  9. OMEPRAZOLE [Concomitant]
  10. LISINOPRIL [Concomitant]

REACTIONS (2)
  - CORONARY ARTERY DISEASE [None]
  - MYOCARDIAL INFARCTION [None]
